FAERS Safety Report 8917481 (Version 7)
Quarter: 2013Q4

REPORT INFORMATION
  Report Type: Spontaneous
  Country: US (occurrence: US)
  Receive Date: 20121120
  Receipt Date: 20131010
  Transmission Date: 20140711
  Serious: Yes (Hospitalization, Other)
  Sender: FDA-Public Use
  Company Number: US-009507513-1211USA007612

PATIENT
  Sex: Female
  Weight: 57.6 kg

DRUGS (8)
  1. FOSAMAX [Suspect]
     Indication: OSTEOPOROSIS
     Dosage: 70 MG, UNK
     Route: 048
     Dates: start: 20041123, end: 20080803
  2. FOSAMAX [Suspect]
     Indication: OSTEOPENIA
  3. FOSAMAX [Suspect]
     Indication: OSTEOPOROSIS
     Dosage: 70 MG, UNK
     Route: 048
     Dates: start: 20080803, end: 20111211
  4. FOSAMAX [Suspect]
     Indication: OSTEOPENIA
  5. VITAMINS (UNSPECIFIED) [Concomitant]
     Indication: ROUTINE HEALTH MAINTENANCE
     Dosage: 2000 IU / 2 DAILY
     Dates: start: 1986
  6. CITRACAL [Concomitant]
     Indication: ROUTINE HEALTH MAINTENANCE
     Dosage: 630 MG, BID
     Dates: start: 1990
  7. VITAMIN B COMPLEX [Concomitant]
     Indication: ROUTINE HEALTH MAINTENANCE
     Dosage: 500 MG, QD
     Dates: start: 1995
  8. CORTICOSTEROIDS (UNSPECIFIED) [Concomitant]
     Indication: PRODUCT USED FOR UNKNOWN INDICATION
     Dosage: UNK, PRN
     Dates: start: 20030421, end: 20100719

REACTIONS (30)
  - Femur fracture [Recovering/Resolving]
  - Open reduction of fracture [Recovering/Resolving]
  - Low turnover osteopathy [Unknown]
  - Wisdom teeth removal [Unknown]
  - Hypertension [Unknown]
  - Osteoarthritis [Unknown]
  - Cataract operation [Unknown]
  - Cataract operation [Unknown]
  - Endodontic procedure [Unknown]
  - Endodontic procedure [Unknown]
  - Device breakage [Unknown]
  - Arthropathy [Unknown]
  - Osteoarthritis [Unknown]
  - Phlebolith [Unknown]
  - Joint injury [Unknown]
  - Intervertebral disc protrusion [Unknown]
  - Meningocele [Unknown]
  - Mitral valve prolapse [Unknown]
  - Wrist surgery [Unknown]
  - Bunion operation [Unknown]
  - Hernia repair [Unknown]
  - Spondylitis [Unknown]
  - Muscular weakness [Not Recovered/Not Resolved]
  - Lumbar radiculopathy [Unknown]
  - Intervertebral disc protrusion [Unknown]
  - Intervertebral disc degeneration [Unknown]
  - Spinal osteoarthritis [Unknown]
  - Pain in extremity [Unknown]
  - Drug ineffective [Unknown]
  - Pain in jaw [Unknown]
